FAERS Safety Report 14999731 (Version 4)
Quarter: 2018Q3

REPORT INFORMATION
  Report Type: Report from Study
  Country: IT (occurrence: IT)
  Receive Date: 20180612
  Receipt Date: 20180809
  Transmission Date: 20181010
  Serious: Yes (Death, Hospitalization, Other)
  Sender: FDA-Public Use
  Company Number: IT-INCYTE CORPORATION-2018IN005432

PATIENT

DRUGS (1)
  1. JAKAVI [Suspect]
     Active Substance: RUXOLITINIB
     Indication: MYELOFIBROSIS
     Dosage: UNK
     Route: 065
     Dates: start: 20170511, end: 20171012

REACTIONS (8)
  - Haemoglobin decreased [Unknown]
  - Myelofibrosis [Unknown]
  - Neutrophil count decreased [Unknown]
  - Pyrexia [Unknown]
  - Pancytopenia [Unknown]
  - Platelet count decreased [Unknown]
  - Myelodysplastic syndrome [Unknown]
  - Sepsis [Fatal]

NARRATIVE: CASE EVENT DATE: 20180116
